FAERS Safety Report 18368084 (Version 5)
Quarter: 2021Q1

REPORT INFORMATION
  Report Type: Report from Study
  Country: AT (occurrence: AT)
  Receive Date: 20201009
  Receipt Date: 20210121
  Transmission Date: 20210419
  Serious: Yes (Hospitalization)
  Sender: FDA-Public Use
  Company Number: AT-MORPHOSYS AG-2020-MOR000819-AT

PATIENT

DRUGS (33)
  1. TAFASITAMAB [Suspect]
     Active Substance: TAFASITAMAB
     Dosage: 12 MILLIGRAM/KILOGRAM, SINGLE
     Route: 042
     Dates: start: 20200819, end: 20200819
  2. METAMIZOL SODIUM [Concomitant]
     Active Substance: METAMIZOL SODIUM
     Indication: POST HERPETIC NEURALGIA
     Dosage: UNK, PRN
     Route: 048
     Dates: start: 20200715
  3. RINGERS SOLUTION [Concomitant]
     Active Substance: CALCIUM CHLORIDE\POTASSIUM CHLORIDE\SODIUM CHLORIDE
     Indication: FLUID REPLACEMENT
     Dosage: 500 MILLIGRAM, SINGLE
     Route: 042
     Dates: start: 20200916, end: 20200916
  4. PASPERTIN [Concomitant]
     Indication: PREMEDICATION
     Dosage: 10 MILLIGRAM, SINGLE
     Route: 042
     Dates: start: 20200910, end: 20200910
  5. ADAMON [Concomitant]
     Indication: POST HERPETIC NEURALGIA
     Dosage: 150 MILLIGRAM, PRN
     Route: 048
     Dates: start: 20200715, end: 20201006
  6. MYCOSTATI N [Concomitant]
     Indication: MUCOSAL INFLAMMATION
     Dosage: UNK, PRN
     Route: 048
     Dates: start: 20200821
  7. BEPANTHEN (DEXPANTHENOL) [Concomitant]
     Active Substance: DEXPANTHENOL
     Indication: MUCOSAL INFLAMMATION
     Dosage: 5 MILLILITER, TID
     Route: 048
     Dates: start: 20200826
  8. RINGERS SOLUTION [Concomitant]
     Active Substance: CALCIUM CHLORIDE\POTASSIUM CHLORIDE\SODIUM CHLORIDE
     Dosage: 1000 MILLILITER, ONCE A WEEK
     Route: 042
     Dates: start: 20200923, end: 20200930
  9. TAFASITAMAB [Suspect]
     Active Substance: TAFASITAMAB
     Dosage: 12 MILLIGRAM/KILOGRAM, SINGLE
     Route: 042
     Dates: start: 20200715, end: 20200715
  10. R?CHOP [Suspect]
     Active Substance: CYCLOPHOSPHAMIDE\DOXORUBICIN\PREDNISONE\RITUXIMAB\VINCRISTINE
     Indication: DIFFUSE LARGE B-CELL LYMPHOMA
     Dosage: UNK
     Dates: start: 20200702
  11. PANTOPRAZOL [Concomitant]
     Active Substance: PANTOPRAZOLE SODIUM
     Indication: GASTRIC DISORDER
     Dosage: 40 MILLIGRAM, QD
     Route: 048
     Dates: start: 20200807
  12. NEULASTA [Concomitant]
     Active Substance: PEGFILGRASTIM
     Indication: PROPHYLAXIS
  13. TAFASITAMAB [Suspect]
     Active Substance: TAFASITAMAB
     Dosage: 12 MILLIGRAM/KILOGRAM, SINGLE
     Route: 042
     Dates: start: 20200708, end: 20200708
  14. PSYCHOPAX [Concomitant]
     Active Substance: DIAZEPAM
     Indication: NAUSEA
     Dosage: 10 DROP, PRN
     Route: 048
     Dates: start: 20200729
  15. CERNEVIT [Concomitant]
     Active Substance: VITAMINS
     Indication: POLYNEUROPATHY
     Dosage: 1 APPLICATION, SINGLE
     Route: 042
     Dates: start: 20200916, end: 20200916
  16. TAFASITAMAB [Suspect]
     Active Substance: TAFASITAMAB
     Dosage: 12 MILLIGRAM/KILOGRAM, SINGLE
     Route: 042
     Dates: start: 20200729, end: 20200729
  17. TAFASITAMAB [Suspect]
     Active Substance: TAFASITAMAB
     Dosage: 12 MILLIGRAM/KILOGRAM, SINGLE
     Route: 042
     Dates: start: 20200807, end: 20200807
  18. TAFASITAMAB [Suspect]
     Active Substance: TAFASITAMAB
     Dosage: 12 MILLIGRAM/KILOGRAM, SINGLE
     Route: 042
     Dates: start: 20200909, end: 20200909
  19. PREGABALIN. [Concomitant]
     Active Substance: PREGABALIN
     Indication: HERPES ZOSTER
     Dosage: 75 MILLIGRAM, QD
     Route: 048
     Dates: start: 20200826
  20. LIDAPRIM FORTE [Concomitant]
     Indication: INFECTION PROPHYLAXIS
     Dosage: 960 MILLIGRAM, QD
     Route: 048
     Dates: start: 20200910, end: 20200929
  21. TAFASITAMAB [Suspect]
     Active Substance: TAFASITAMAB
     Dosage: 12 MILLIGRAM/KILOGRAM, SINGLE
     Route: 042
     Dates: start: 20200812, end: 20200812
  22. TAFASITAMAB [Suspect]
     Active Substance: TAFASITAMAB
     Dosage: 12 MILLIGRAM/KILOGRAM, SINGLE
     Route: 042
     Dates: start: 20200916, end: 20200916
  23. TAFASITAMAB [Suspect]
     Active Substance: TAFASITAMAB
     Dosage: 12 MILLIGRAM/KILOGRAM, SINGLE
     Route: 042
     Dates: start: 20200923, end: 20200923
  24. PASPERTIN [Concomitant]
     Indication: VOMITING
     Dosage: 1 AMPULE, SINGLE
     Route: 042
     Dates: start: 20200923, end: 20200923
  25. INHIXA [Concomitant]
     Active Substance: ENOXAPARIN SODIUM
     Indication: THROMBOSIS PROPHYLAXIS
     Dosage: 4000 INTERNATIONAL UNIT, QD
     Route: 058
     Dates: start: 20200828, end: 20200908
  26. CERNEVIT [Concomitant]
     Active Substance: VITAMINS
     Indication: POLYNEUROPATHY
     Dosage: 1 APPLICATION, ONCE A WEEK
     Route: 042
     Dates: start: 20200923, end: 20200930
  27. NEULASTA [Concomitant]
     Active Substance: PEGFILGRASTIM
     Indication: NEUTROPENIA
     Dosage: 6 MILLIGRAM, SINGLE
     Route: 058
     Dates: start: 20200912, end: 20200912
  28. TAFASITAMAB [Suspect]
     Active Substance: TAFASITAMAB
     Indication: DIFFUSE LARGE B-CELL LYMPHOMA
     Dosage: 12 MILLIGRAM/KILOGRAM, SINGLE
     Route: 042
     Dates: start: 20200701, end: 20200701
  29. ZOFRAN [Concomitant]
     Active Substance: ONDANSETRON HYDROCHLORIDE
     Indication: NAUSEA
     Dosage: 8 MILLIGRAM, QD
     Route: 048
     Dates: start: 20200729
  30. TAFASITAMAB [Suspect]
     Active Substance: TAFASITAMAB
     Dosage: 12 MILLIGRAM/KILOGRAM, SINGLE
     Route: 042
     Dates: start: 20200722, end: 20200722
  31. ALLOPURINOL. [Concomitant]
     Active Substance: ALLOPURINOL
     Indication: ACUTE KIDNEY INJURY
     Dosage: 300 MILLIGRAM, QD
     Route: 048
     Dates: start: 20200828, end: 20201005
  32. XYLOCAIN VISC??S [Concomitant]
     Indication: MUCOSAL INFLAMMATION
     Dosage: UNK, PRN
     Route: 048
     Dates: start: 20200826
  33. PASSEDAN [Concomitant]
     Indication: SLEEP DISORDER
     Dosage: 20 DROP, PRN
     Route: 048
     Dates: start: 20200826, end: 20200901

REACTIONS (1)
  - Pulmonary embolism [Recovered/Resolved]

NARRATIVE: CASE EVENT DATE: 20200930
